FAERS Safety Report 22872426 (Version 4)
Quarter: 2024Q1

REPORT INFORMATION
  Report Type: Spontaneous
  Country: US (occurrence: US)
  Receive Date: 20230828
  Receipt Date: 20240227
  Transmission Date: 20240409
  Serious: No
  Sender: FDA-Public Use
  Company Number: US-PFIZER INC-PV202300146395

PATIENT
  Age: 65 Year
  Sex: Female
  Weight: 66.68 kg

DRUGS (3)
  1. BOSULIF [Suspect]
     Active Substance: BOSUTINIB MONOHYDRATE
     Indication: Chronic myeloid leukaemia
     Dosage: 100 MG
  2. BOSULIF [Suspect]
     Active Substance: BOSUTINIB MONOHYDRATE
     Dosage: 300MG AT NIGHT (THREE TABLETS OF 100MG AT NIGHT BY MOUTH)
     Route: 048
     Dates: start: 202002, end: 20240203
  3. BOSULIF [Suspect]
     Active Substance: BOSUTINIB MONOHYDRATE
     Dosage: 300 MG (3 TABS OF 100MG), DAILY
     Route: 048

REACTIONS (4)
  - Illness [Unknown]
  - Anxiety [Unknown]
  - Pain [Unknown]
  - Fibromyalgia [Unknown]
